FAERS Safety Report 5821117-0 (Version None)
Quarter: 2008Q3

REPORT INFORMATION
  Report Type: 
  Country: None (occurrence: None)
  Receive Date: 20080724
  Receipt Date: 20080218
  Transmission Date: 20090109
  Serious: No
  Sender: FDA-Public Use
  Company Number: US-BAYER-200810696BCC

PATIENT
  Age: 29 Year
  Sex: Female
  Weight: 50 kg

DRUGS (2)
  1. ALEVE (CAPLET) [Suspect]
     Indication: PAIN
     Dosage: TOTAL DAILY DOSE: 2200 MG  UNIT DOSE: 220 MG
     Route: 048
     Dates: start: 20080213
  2. NITROFURANTOIN [Concomitant]

REACTIONS (1)
  - ABDOMINAL DISCOMFORT [None]
